FAERS Safety Report 21947101 (Version 1)
Quarter: 2023Q1

REPORT INFORMATION
  Report Type: Spontaneous
  Country: US (occurrence: US)
  Receive Date: 20230202
  Receipt Date: 20230202
  Transmission Date: 20230418
  Serious: Yes (Other)
  Sender: FDA-Public Use
  Company Number: US-DSJP-DSU-2023-103695

PATIENT
  Age: 70 Year
  Sex: Female

DRUGS (1)
  1. ENHERTU [Suspect]
     Active Substance: FAM-TRASTUZUMAB DERUXTECAN-NXKI
     Indication: HER2 positive breast cancer
     Dosage: UNK
     Route: 065
     Dates: start: 2022

REACTIONS (3)
  - Hepatic failure [Not Recovered/Not Resolved]
  - Ascites [Not Recovered/Not Resolved]
  - Blood bilirubin increased [Not Recovered/Not Resolved]
